FAERS Safety Report 20594299 (Version 2)
Quarter: 2022Q1

REPORT INFORMATION
  Report Type: Spontaneous
  Country: JP (occurrence: JP)
  Receive Date: 20220315
  Receipt Date: 20220319
  Transmission Date: 20220423
  Serious: Yes (Other)
  Sender: FDA-Public Use
  Company Number: JP-BAYER-2022A036411

PATIENT
  Age: 81 Year
  Sex: Male

DRUGS (4)
  1. XARELTO [Interacting]
     Active Substance: RIVAROXABAN
     Indication: Atrial fibrillation
     Dosage: 10MG
     Route: 048
     Dates: start: 20220224, end: 20220225
  2. XARELTO [Interacting]
     Active Substance: RIVAROXABAN
     Indication: Cerebrovascular accident prophylaxis
     Dosage: 5 MG, EVERY OTHER DAY
     Route: 048
     Dates: start: 20220226, end: 20220310
  3. BUFFERIN [Interacting]
     Active Substance: ASPIRIN
     Indication: Product used for unknown indication
     Dosage: UNK
     Dates: start: 20220224, end: 20220225
  4. BUFFERIN [Interacting]
     Active Substance: ASPIRIN
     Dosage: UNK, QOD
     Dates: start: 20220226, end: 20220311

REACTIONS (5)
  - Deep vein thrombosis [Unknown]
  - Mouth haemorrhage [Recovered/Resolved]
  - Off label use [Unknown]
  - Wrong technique in product usage process [Unknown]
  - Labelled drug-drug interaction medication error [Unknown]

NARRATIVE: CASE EVENT DATE: 20220101
